FAERS Safety Report 7222346-4 (Version None)
Quarter: 2010Q4

REPORT INFORMATION
  Report Type: 
  Country: None (occurrence: None)
  Receive Date: 20101126
  Receipt Date: 20100827
  Transmission Date: 20110411
  Serious: No
  Sender: FDA-Public Use
  Company Number: 313970

PATIENT
  Sex: Female

DRUGS (2)
  1. VICTOZA [Suspect]
     Indication: TYPE 2 DIABETES MELLITUS
     Dosage: 0.6 MG, QD, SUBCUTANEOUS
     Route: 058
     Dates: start: 20100820
  2. METFORMIN HCL [Concomitant]

REACTIONS (8)
  - ABDOMINAL DISTENSION [None]
  - ASTHENIA [None]
  - BLOOD GLUCOSE INCREASED [None]
  - DYSPEPSIA [None]
  - FATIGUE [None]
  - NAUSEA [None]
  - VOMITING [None]
  - WEIGHT DECREASED [None]
